FAERS Safety Report 25347492 (Version 1)
Quarter: 2025Q2

REPORT INFORMATION
  Report Type: Spontaneous
  Country: US (occurrence: None)
  Receive Date: 20250521
  Receipt Date: 20250521
  Transmission Date: 20250717
  Serious: Yes (Life-Threatening, Hospitalization, Disabling, Other)
  Sender: FDA-CTU
  Company Number: None

PATIENT
  Age: 43 Year
  Sex: Female
  Weight: 65.7 kg

DRUGS (2)
  1. RINVOQ [Suspect]
     Active Substance: UPADACITINIB
     Indication: Crohn^s disease
     Dates: start: 20230901, end: 20241016
  2. FECAL MICROBIOTA [Suspect]
     Active Substance: FECAL MICROBIOTA
     Indication: Clostridium difficile infection
     Dates: start: 20150704

REACTIONS (3)
  - Myositis [None]
  - Meningioma [None]
  - Crohn^s disease [None]

NARRATIVE: CASE EVENT DATE: 20241016
